FAERS Safety Report 17489478 (Version 1)
Quarter: 2020Q1

REPORT INFORMATION
  Report Type: Spontaneous
  Country: US (occurrence: US)
  Receive Date: 20200221
  Receipt Date: 20200221
  Transmission Date: 20200409
  Serious: No
  Sender: FDA-Public Use
  Company Number: None

PATIENT
  Age: 67 Year
  Sex: Female

DRUGS (4)
  1. METFORMIN [Concomitant]
     Active Substance: METFORMIN HYDROCHLORIDE
  2. FASLODEX [Concomitant]
     Active Substance: FULVESTRANT
  3. ONDANSETRON [Concomitant]
     Active Substance: ONDANSETRON
  4. IBRANCE [Suspect]
     Active Substance: PALBOCICLIB
     Indication: BREAST CANCER
     Route: 048
     Dates: start: 20191211

REACTIONS (5)
  - Chills [None]
  - Hyperhidrosis [None]
  - Arthralgia [None]
  - Pain in extremity [None]
  - Fatigue [None]

NARRATIVE: CASE EVENT DATE: 20200215
